FAERS Safety Report 8307895-X (Version None)
Quarter: 2012Q2

REPORT INFORMATION
  Report Type: 
  Country: None (occurrence: None)
  Receive Date: 20120424
  Receipt Date: 20120417
  Transmission Date: 20120825
  Serious: No
  Sender: FDA-Public Use
  Company Number: US-PFIZER INC-2012095999

PATIENT

DRUGS (5)
  1. CIPROFLOXACIN [Suspect]
     Dosage: UNK
  2. POTASSIUM PENICILLIN G [Suspect]
     Dosage: UNK
  3. AMPICILLIN [Suspect]
     Dosage: UNK
  4. ERYTHROMYCIN [Suspect]
     Dosage: UNK
  5. THIOPENTAL SODIUM [Suspect]
     Dosage: UNK

REACTIONS (1)
  - DRUG HYPERSENSITIVITY [None]
